FAERS Safety Report 24039890 (Version 1)
Quarter: 2024Q3

REPORT INFORMATION
  Report Type: Spontaneous
  Country: US (occurrence: US)
  Receive Date: 20240702
  Receipt Date: 20240702
  Transmission Date: 20241017
  Serious: Yes (Hospitalization)
  Sender: SEBELA
  Company Number: US-SEBELA IRELAND LIMITED-2024SEB00048

PATIENT
  Age: 56 Year
  Sex: Female

DRUGS (1)
  1. LABETALOL HYDROCHLORIDE [Suspect]
     Active Substance: LABETALOL\LABETALOL HYDROCHLORIDE
     Indication: Blood pressure management

REACTIONS (1)
  - BRASH syndrome [Recovered/Resolved]
